FAERS Safety Report 7645462-1 (Version None)
Quarter: 2011Q3

REPORT INFORMATION
  Report Type: 
  Country: None (occurrence: None)
  Receive Date: 20110729
  Receipt Date: 20110718
  Transmission Date: 20111222
  Serious: Yes (Other)
  Sender: FDA-Public Use
  Company Number: US-ELI_LILLY_AND_COMPANY-US201107005069

PATIENT
  Age: 38 Year
  Sex: Female

DRUGS (3)
  1. CYMBALTA [Suspect]
     Dosage: UNK
  2. LYRICA [Concomitant]
     Dosage: UNK
  3. THYROID THERAPY [Concomitant]
     Dosage: UNK

REACTIONS (8)
  - THYROID DISORDER [None]
  - FEELING GUILTY [None]
  - HYSTERECTOMY [None]
  - FATIGUE [None]
  - PAIN [None]
  - FEELING ABNORMAL [None]
  - ROAD TRAFFIC ACCIDENT [None]
  - ARTHRITIS [None]
